FAERS Safety Report 7803855 (Version 12)
Quarter: 2014Q3

REPORT INFORMATION
  Report Type: Report from Study
  Country: BR (occurrence: BR)
  Receive Date: 20110208
  Receipt Date: 20140714
  Transmission Date: 20150326
  Serious: Yes (Life-Threatening, Hospitalization, Disabling, Other)
  Sender: FDA-Public Use
  Company Number: BR-ROCHE-757704

PATIENT
  Age: 82 Year
  Sex: Female
  Weight: 85 kg

DRUGS (28)
  1. ROCALTROL [Concomitant]
     Active Substance: CALCITRIOL
     Route: 065
  2. ALPRAZOLAM. [Concomitant]
     Active Substance: ALPRAZOLAM
  3. DORMONID [Concomitant]
  4. MABTHERA [Suspect]
     Active Substance: RITUXIMAB
     Route: 042
     Dates: start: 20110502, end: 20110517
  5. ACTEMRA [Suspect]
     Active Substance: TOCILIZUMAB
     Indication: RHEUMATOID ARTHRITIS
     Dosage: FORM: INFUSION
     Route: 042
  6. PARACETAMOL [Concomitant]
     Active Substance: ACETAMINOPHEN
  7. BONVIVA [Concomitant]
     Active Substance: IBANDRONATE SODIUM
     Route: 065
  8. DIOSMIN [Concomitant]
     Active Substance: DIOSMIN
  9. OMEPRAZOL [Concomitant]
     Active Substance: OMEPRAZOLE
  10. HIDRION [Concomitant]
  11. ALLOPURINOL. [Concomitant]
     Active Substance: ALLOPURINOL
  12. MABTHERA [Suspect]
     Active Substance: RITUXIMAB
     Indication: RHEUMATOID ARTHRITIS
     Route: 042
     Dates: start: 20071201, end: 2011
  13. OSTEONUTRI [Concomitant]
  14. BAMIFIX [Concomitant]
     Active Substance: BAMIFYLLINE HYDROCHLORIDE
     Indication: OSTEOPOROSIS
     Route: 065
  15. DAFLON [Concomitant]
     Active Substance: DIOSMIN\HESPERIDIN
  16. CODEINE [Concomitant]
     Active Substance: CODEINE
  17. PANTOPRAZOLE [Concomitant]
     Active Substance: PANTOPRAZOLE SODIUM
  18. LOSARTAN [Concomitant]
     Active Substance: LOSARTAN
  19. DOMPERIDONE [Concomitant]
     Active Substance: DOMPERIDONE
  20. METHOTREXATE [Concomitant]
     Active Substance: METHOTREXATE
     Route: 048
  21. TENOXICAM [Concomitant]
     Active Substance: TENOXICAM
     Route: 048
  22. FORASEQ (BRAZIL) [Concomitant]
     Active Substance: BUDESONIDE\FORMOTEROL FUMARATE
  23. HYZAAR [Concomitant]
     Active Substance: HYDROCHLOROTHIAZIDE\LOSARTAN POTASSIUM
     Indication: CARDIAC DISORDER
     Dosage: DOSE: 50 MG + 12.5 MG
     Route: 065
  24. ACTEMRA [Suspect]
     Active Substance: TOCILIZUMAB
     Dosage: FREQ: NOT REPORTED
     Route: 042
     Dates: start: 20100715, end: 20110131
  25. BOVINE COLOSTRUM [Concomitant]
  26. ALDACTONE (BRAZIL) [Concomitant]
  27. SPIRIVA [Concomitant]
     Active Substance: TIOTROPIUM BROMIDE MONOHYDRATE
  28. ALLEGRA-D [Concomitant]
     Active Substance: FEXOFENADINE\PSEUDOEPHEDRINE

REACTIONS (25)
  - Cough [Recovered/Resolved]
  - Renal failure [Recovering/Resolving]
  - Erysipelas [Recovered/Resolved]
  - Nasopharyngitis [Not Recovered/Not Resolved]
  - Haemorrhage [Recovering/Resolving]
  - Nasal discomfort [Recovered/Resolved]
  - Ear pruritus [Recovered/Resolved]
  - Pain [Unknown]
  - Gait disturbance [Not Recovered/Not Resolved]
  - Renal failure chronic [Not Recovered/Not Resolved]
  - Leukopenia [Recovered/Resolved]
  - Arthropathy [Recovered/Resolved]
  - Therapeutic response delayed [Recovered/Resolved]
  - Neutropenia [Recovered/Resolved]
  - Arthropathy [Recovering/Resolving]
  - Chills [Recovered/Resolved]
  - Dysphonia [Not Recovered/Not Resolved]
  - Cardiac failure [Recovering/Resolving]
  - Arthropathy [Not Recovered/Not Resolved]
  - Lymphangitis [Recovering/Resolving]
  - Somnolence [Not Recovered/Not Resolved]
  - Hypertension [Not Recovered/Not Resolved]
  - Bronchospasm [Not Recovered/Not Resolved]
  - Arthropathy [Unknown]
  - Oral pruritus [Recovered/Resolved]

NARRATIVE: CASE EVENT DATE: 20081201
